FAERS Safety Report 19354407 (Version 1)
Quarter: 2021Q2

REPORT INFORMATION
  Report Type: Spontaneous
  Country: US (occurrence: US)
  Receive Date: 20210531
  Receipt Date: 20210531
  Transmission Date: 20210717
  Serious: Yes (Other)
  Sender: FDA-Public Use
  Company Number: None

PATIENT
  Sex: Male

DRUGS (1)
  1. POTASSIUM [Suspect]
     Active Substance: POTASSIUM

REACTIONS (2)
  - Product distribution issue [None]
  - Transcription medication error [None]
